FAERS Safety Report 12038650 (Version 1)
Quarter: 2016Q1

REPORT INFORMATION
  Report Type: Spontaneous
  Country: US (occurrence: None)
  Receive Date: 20160205
  Receipt Date: 20160205
  Transmission Date: 20160526
  Serious: No
  Sender: FDA-Public Use
  Company Number: None

PATIENT
  Age: 31 Year
  Sex: Female

DRUGS (25)
  1. AMOXICLAV [Concomitant]
     Active Substance: AMOXICILLIN\CLAVULANIC ACID
  2. HYDROXYZ [Concomitant]
     Active Substance: HYDROXYZINE HYDROCHLORIDE
  3. ACYCLOVIR. [Concomitant]
     Active Substance: ACYCLOVIR
  4. FENTANYL. [Concomitant]
     Active Substance: FENTANYL
  5. FLUCONAZOLE. [Concomitant]
     Active Substance: FLUCONAZOLE
  6. OXYCODONE AND ACETAMINOPHEN [Concomitant]
     Active Substance: ACETAMINOPHEN\OXYCODONE HYDROCHLORIDE
  7. CIMZIA [Suspect]
     Active Substance: CERTOLIZUMAB PEGOL
     Indication: CROHN^S DISEASE
     Route: 058
     Dates: start: 20120812
  8. NORTRIPTYLIN [Concomitant]
     Active Substance: NORTRIPTYLINE
  9. PENICILLIN [Concomitant]
     Active Substance: PENICILLIN
  10. CARBALEVO [Concomitant]
  11. CIPROFLOXACIN. [Concomitant]
     Active Substance: CIPROFLOXACIN
  12. HYPERCARE SOL. [Concomitant]
  13. PROMETHAZINE [Concomitant]
     Active Substance: PROMETHAZINE\PROMETHAZINE HYDROCHLORIDE
  14. ZOVIA [Concomitant]
     Active Substance: ETHINYL ESTRADIOL\ETHYNODIOL DIACETATE
  15. CEPHALEXIN. [Concomitant]
     Active Substance: CEPHALEXIN
  16. CIMZIA [Concomitant]
     Active Substance: CERTOLIZUMAB PEGOL
  17. OXYCODONE [Concomitant]
     Active Substance: OXYCODONE
  18. OXYCONTIN [Concomitant]
     Active Substance: OXYCODONE HYDROCHLORIDE
  19. PROCTOFOAM [Concomitant]
     Active Substance: PRAMOXINE HYDROCHLORIDE
  20. ANUCORT-HC [Concomitant]
     Active Substance: HYDROCORTISONE ACETATE
  21. MORPHINE [Concomitant]
     Active Substance: MORPHINE
  22. TRIAMCINOLON [Concomitant]
  23. CITALOPRAM [Concomitant]
     Active Substance: CITALOPRAM HYDROBROMIDE
  24. CLOTRIMBETA [Concomitant]
  25. MERCAPTOPUR [Concomitant]

REACTIONS (1)
  - Crohn^s disease [None]

NARRATIVE: CASE EVENT DATE: 20160204
